FAERS Safety Report 13612131 (Version 1)
Quarter: 2017Q2

REPORT INFORMATION
  Report Type: Spontaneous
  Country: CA (occurrence: CA)
  Receive Date: 20170605
  Receipt Date: 20170605
  Transmission Date: 20170830
  Serious: Yes (Hospitalization)
  Sender: FDA-Public Use
  Company Number: CA-ABBVIE-17P-028-1996121-00

PATIENT
  Sex: Male

DRUGS (1)
  1. VENCLEXTA [Suspect]
     Active Substance: VENETOCLAX
     Indication: CHRONIC LYMPHOCYTIC LEUKAEMIA
     Route: 048

REACTIONS (7)
  - Staphylococcal infection [Unknown]
  - Oedema [Unknown]
  - Drug ineffective [Unknown]
  - Blood count abnormal [Recovered/Resolved]
  - Diarrhoea [Unknown]
  - Swelling [Unknown]
  - Malaise [Unknown]
